FAERS Safety Report 4563283-3 (Version None)
Quarter: 2005Q1

REPORT INFORMATION
  Report Type: 
  Country: None (occurrence: None)
  Receive Date: 20050128
  Receipt Date: 20000816
  Transmission Date: 20050727
  Serious: No
  Sender: FDA-Public Use
  Company Number: US-GLAXOSMITHKLINE-A0126084A

PATIENT
  Age: 17 Year
  Sex: Male
  Weight: 63.6 kg

DRUGS (2)
  1. WELLBUTRIN [Suspect]
     Indication: ATTENTION DEFICIT/HYPERACTIVITY DISORDER
     Dosage: 100MG TWICE PER DAY
     Route: 048
     Dates: start: 20000301, end: 20000301
  2. PROZAC [Concomitant]
     Indication: DEPRESSION
     Route: 048

REACTIONS (7)
  - ARTHRALGIA [None]
  - JOINT SWELLING [None]
  - OEDEMA PERIPHERAL [None]
  - PAIN IN EXTREMITY [None]
  - RASH PRURITIC [None]
  - SERUM SICKNESS [None]
  - URTICARIA GENERALISED [None]
